FAERS Safety Report 5572474-4 (Version None)
Quarter: 2007Q4

REPORT INFORMATION
  Report Type: 
  Country: None (occurrence: None)
  Receive Date: 20071219
  Receipt Date: 20071204
  Transmission Date: 20080405
  Serious: Yes (Hospitalization, Other)
  Sender: FDA-Public Use
  Company Number: S07-PRT-06345-01

PATIENT
  Age: 60 Year
  Sex: Female

DRUGS (2)
  1. ESCITALOPRAM [Suspect]
  2. IBUPROFEN [Concomitant]

REACTIONS (5)
  - BLOOD THROMBOPLASTIN DECREASED [None]
  - GINGIVAL BLEEDING [None]
  - HAEMATOMA [None]
  - HAEMATURIA [None]
  - PROTHROMBIN LEVEL ABNORMAL [None]
